FAERS Safety Report 17811140 (Version 1)
Quarter: 2020Q2

REPORT INFORMATION
  Report Type: Spontaneous
  Country: CA (occurrence: CA)
  Receive Date: 20200521
  Receipt Date: 20200521
  Transmission Date: 20200714
  Serious: Yes (Other)
  Sender: FDA-Public Use
  Company Number: CA-RECORDATI RARE DISEASES-2084050

PATIENT
  Age: 62 Year
  Sex: Female
  Weight: 97 kg

DRUGS (18)
  1. IRON [Concomitant]
     Active Substance: IRON
  2. VITAMIN D [Concomitant]
     Active Substance: VITAMIN D NOS
  3. PANTOPRAZOLE [Suspect]
     Active Substance: PANTOPRAZOLE
  4. AMLODIPINE [Concomitant]
     Active Substance: AMLODIPINE BESYLATE
     Dates: start: 202001
  5. SIGNIFOR [Suspect]
     Active Substance: PASIREOTIDE DIASPARTATE
     Route: 058
     Dates: start: 201803, end: 20180416
  6. JANUMET [Concomitant]
     Active Substance: METFORMIN HYDROCHLORIDE\SITAGLIPTIN PHOSPHATE
  7. SIGNIFOR [Suspect]
     Active Substance: PASIREOTIDE DIASPARTATE
     Indication: PITUITARY-DEPENDENT CUSHING^S SYNDROME
     Route: 058
     Dates: start: 20180308
  8. CORTEF [Suspect]
     Active Substance: HYDROCORTISONE
  9. FERROUS SULFATE. [Concomitant]
     Active Substance: FERROUS SULFATE
  10. EZETIMIBE. [Concomitant]
     Active Substance: EZETIMIBE
     Dates: start: 202001
  11. CALCIUM [Concomitant]
     Active Substance: CALCIUM
  12. IRBESARTAN AND HYDROCHLOROTHIAZIDE [Concomitant]
     Active Substance: HYDROCHLOROTHIAZIDE\IRBESARTAN
  13. CRESTOR [Concomitant]
     Active Substance: ROSUVASTATIN CALCIUM
  14. SIGNIFOR [Suspect]
     Active Substance: PASIREOTIDE DIASPARTATE
     Route: 058
     Dates: start: 20180801
  15. SIGNIFOR LAR [Suspect]
     Active Substance: PASIREOTIDE PAMOATE
     Route: 030
     Dates: start: 20180308
  16. CARBAMIDE [Concomitant]
     Active Substance: UREA
  17. CABERGOLINE. [Concomitant]
     Active Substance: CABERGOLINE
  18. PANTOLOC [Concomitant]
     Active Substance: PANTOPRAZOLE SODIUM

REACTIONS (35)
  - Dyspnoea [Recovering/Resolving]
  - Hydrothorax [Recovered/Resolved]
  - Frequent bowel movements [Unknown]
  - Fatigue [Unknown]
  - Weight increased [Unknown]
  - Vomiting [Recovered/Resolved]
  - Peripheral swelling [Unknown]
  - Dyspnoea exertional [Unknown]
  - Blood pressure systolic increased [Unknown]
  - Blood urine present [Unknown]
  - Abnormal faeces [Recovered/Resolved]
  - Uterine haemorrhage [Unknown]
  - Somnolence [Unknown]
  - Pain [Unknown]
  - Nausea [Recovered/Resolved]
  - Dysuria [Not Recovered/Not Resolved]
  - Arthropathy [Unknown]
  - Injection site pain [Unknown]
  - Nausea [Unknown]
  - Vaginal haemorrhage [Unknown]
  - Chest pain [Recovered/Resolved]
  - Uterine polyp [Unknown]
  - Abdominal discomfort [Unknown]
  - Asthenia [Unknown]
  - Hyperglycaemia [Not Recovered/Not Resolved]
  - Injection site vesicles [Unknown]
  - Dysphagia [Unknown]
  - Balance disorder [Unknown]
  - Headache [Unknown]
  - Abdominal pain upper [Unknown]
  - Abdominal pain lower [Recovered/Resolved]
  - Uterine mass [Unknown]
  - Gait inability [Unknown]
  - Cortisol increased [Unknown]
  - Dizziness [Unknown]

NARRATIVE: CASE EVENT DATE: 201803
